FAERS Safety Report 10091629 (Version 2)
Quarter: 2015Q3

REPORT INFORMATION
  Report Type: Spontaneous
  Country: US (occurrence: US)
  Receive Date: 20140421
  Receipt Date: 20150813
  Transmission Date: 20151125
  Serious: No
  Sender: FDA-Public Use
  Company Number: US-GILEAD-2012-0066418

PATIENT
  Age: 59 Year
  Sex: Male

DRUGS (13)
  1. ATROVENT [Concomitant]
     Active Substance: IPRATROPIUM BROMIDE
  2. ALBUTEROL                          /00139501/ [Concomitant]
     Active Substance: ALBUTEROL
  3. GLIPIZIDE. [Concomitant]
     Active Substance: GLIPIZIDE
  4. FUROSEMIDE. [Concomitant]
     Active Substance: FUROSEMIDE
  5. HYDROCODONE [Concomitant]
     Active Substance: HYDROCODONE
  6. ALPRAZOLAM. [Concomitant]
     Active Substance: ALPRAZOLAM
  7. SPIRONOLACTONE. [Concomitant]
     Active Substance: SPIRONOLACTONE
  8. METRONIDAZOLE. [Concomitant]
     Active Substance: METRONIDAZOLE
  9. LISINOPRIL. [Concomitant]
     Active Substance: LISINOPRIL
  10. SINGULAIR [Concomitant]
     Active Substance: MONTELUKAST SODIUM
  11. TRICOR                             /00090101/ [Concomitant]
     Active Substance: ADENOSINE
  12. LETAIRIS [Suspect]
     Active Substance: AMBRISENTAN
     Indication: PRODUCT USED FOR UNKNOWN INDICATION
     Dosage: 5 MG, QD
     Route: 048
     Dates: start: 20080725
  13. ACIPHEX [Concomitant]
     Active Substance: RABEPRAZOLE SODIUM

REACTIONS (1)
  - Headache [Unknown]

NARRATIVE: CASE EVENT DATE: 201211
